FAERS Safety Report 7284563-7 (Version None)
Quarter: 2011Q1

REPORT INFORMATION
  Report Type: 
  Country: None (occurrence: None)
  Receive Date: 20110210
  Receipt Date: 20110126
  Transmission Date: 20110831
  Serious: Yes (Other)
  Sender: FDA-Public Use
  Company Number: AT-BIOGENIDEC-2010BI043045

PATIENT
  Age: 34 Year
  Sex: Female

DRUGS (4)
  1. TYSABRI [Suspect]
     Indication: MULTIPLE SCLEROSIS
     Dates: start: 20080726, end: 20101109
  2. TARDYFERON [Concomitant]
  3. VALTREX [Concomitant]
  4. RIVOTRIL [Concomitant]

REACTIONS (1)
  - ABORTION SPONTANEOUS [None]
